FAERS Safety Report 20181785 (Version 3)
Quarter: 2022Q1

REPORT INFORMATION
  Report Type: Spontaneous
  Country: PL (occurrence: PL)
  Receive Date: 20211214
  Receipt Date: 20220215
  Transmission Date: 20220423
  Serious: Yes (Hospitalization, Other)
  Sender: FDA-Public Use
  Company Number: PL-TEVA-2021-PL-1988144

PATIENT
  Age: 71 Year
  Sex: Male

DRUGS (50)
  1. ATORVASTATIN [Suspect]
     Active Substance: ATORVASTATIN
     Indication: Product used for unknown indication
     Dosage: 10 MILLIGRAM DAILY;
     Route: 065
  2. CARVEDILOL [Suspect]
     Active Substance: CARVEDILOL
     Dosage: 13 MILLIGRAM DAILY;
     Route: 065
     Dates: start: 202103
  3. CARVEDILOL [Suspect]
     Active Substance: CARVEDILOL
     Dosage: 13 MILLIGRAM DAILY;
     Route: 065
     Dates: start: 202109
  4. CARVEDILOL [Suspect]
     Active Substance: CARVEDILOL
     Dosage: 13 MILLIGRAM DAILY;
     Route: 065
     Dates: start: 202107
  5. CARVEDILOL [Suspect]
     Active Substance: CARVEDILOL
     Dosage: 6.25 MILLIGRAM DAILY;
     Route: 065
     Dates: start: 201905
  6. CARVEDILOL [Suspect]
     Active Substance: CARVEDILOL
     Dosage: 12.5 MILLIGRAM DAILY;
     Route: 065
  7. CARVEDILOL [Suspect]
     Active Substance: CARVEDILOL
     Dosage: 6.25 MILLIGRAM DAILY;
     Route: 065
     Dates: start: 201804
  8. CARVEDILOL [Suspect]
     Active Substance: CARVEDILOL
     Dosage: 13 MILLIGRAM DAILY;
     Route: 065
     Dates: start: 202109
  9. CARVEDILOL [Suspect]
     Active Substance: CARVEDILOL
     Dosage: 13 MILLIGRAM DAILY;
     Route: 065
     Dates: start: 202101
  10. DIGOXIN [Suspect]
     Active Substance: DIGOXIN
     Indication: Product used for unknown indication
     Dosage: .1 MILLIGRAM DAILY;
     Route: 065
  11. TORSEMIDE [Suspect]
     Active Substance: TORSEMIDE
     Indication: Product used for unknown indication
     Dosage: 5 MILLIGRAM DAILY;
     Route: 065
     Dates: start: 202107
  12. TORSEMIDE [Suspect]
     Active Substance: TORSEMIDE
     Dosage: 10 MILLIGRAM DAILY;
     Route: 065
     Dates: start: 202109
  13. TORSEMIDE [Suspect]
     Active Substance: TORSEMIDE
     Dosage: 10 MILLIGRAM DAILY;
     Route: 065
     Dates: start: 202109
  14. TORSEMIDE [Suspect]
     Active Substance: TORSEMIDE
     Dosage: 1 TABLET IN THE EVENING
     Route: 065
     Dates: start: 202107
  15. LEVOTHYROXINE [Suspect]
     Active Substance: LEVOTHYROXINE
     Indication: Product used for unknown indication
     Route: 065
  16. EMPAGLIFLOZIN [Suspect]
     Active Substance: EMPAGLIFLOZIN
     Indication: Product used for unknown indication
     Dosage: 10 MILLIGRAM DAILY;
     Route: 065
     Dates: start: 201804
  17. HYDROCHLOROTHIAZIDE [Suspect]
     Active Substance: HYDROCHLOROTHIAZIDE
     Indication: Product used for unknown indication
     Dosage: 25 MILLIGRAM DAILY;
     Route: 065
     Dates: start: 201804
  18. HYDROCHLOROTHIAZIDE [Suspect]
     Active Substance: HYDROCHLOROTHIAZIDE
     Dosage: 25 MILLIGRAM DAILY;
     Route: 065
     Dates: start: 201801
  19. HYDROCHLOROTHIAZIDE [Suspect]
     Active Substance: HYDROCHLOROTHIAZIDE
     Dosage: 25 MILLIGRAM DAILY;
     Route: 065
     Dates: start: 201905
  20. SACUBITRIL\VALSARTAN [Suspect]
     Active Substance: SACUBITRIL\VALSARTAN
     Indication: Cardiac failure
     Dosage: 100 MILLIGRAM DAILY;
     Route: 065
     Dates: start: 201804
  21. SACUBITRIL\VALSARTAN [Suspect]
     Active Substance: SACUBITRIL\VALSARTAN
     Dosage: 100 MILLIGRAM DAILY;
     Route: 065
     Dates: start: 202109
  22. SACUBITRIL\VALSARTAN [Suspect]
     Active Substance: SACUBITRIL\VALSARTAN
     Dosage: 200 MILLIGRAM DAILY;
     Route: 065
     Dates: start: 202101
  23. SACUBITRIL\VALSARTAN [Suspect]
     Active Substance: SACUBITRIL\VALSARTAN
     Dosage: 200 MILLIGRAM DAILY;
     Route: 065
     Dates: start: 202103
  24. SACUBITRIL\VALSARTAN [Suspect]
     Active Substance: SACUBITRIL\VALSARTAN
     Dosage: 100 MILLIGRAM DAILY;
     Route: 065
     Dates: start: 202107
  25. SACUBITRIL\VALSARTAN [Suspect]
     Active Substance: SACUBITRIL\VALSARTAN
     Route: 065
  26. SACUBITRIL\VALSARTAN [Suspect]
     Active Substance: SACUBITRIL\VALSARTAN
     Dosage: 100 MILLIGRAM DAILY;
     Route: 065
     Dates: start: 201905
  27. SACUBITRIL\VALSARTAN [Suspect]
     Active Substance: SACUBITRIL\VALSARTAN
     Dosage: 100 MILLIGRAM DAILY;
     Route: 065
     Dates: start: 202109
  28. SACUBITRIL\VALSARTAN [Suspect]
     Active Substance: SACUBITRIL\VALSARTAN
     Dosage: 100 MILLIGRAM DAILY;
     Route: 065
     Dates: start: 202101
  29. ALLOPURINOL [Suspect]
     Active Substance: ALLOPURINOL
     Indication: Product used for unknown indication
     Route: 065
  30. SPIRONOLACTONE [Suspect]
     Active Substance: SPIRONOLACTONE
     Indication: Product used for unknown indication
     Dosage: 100 MILLIGRAM DAILY;
     Route: 065
     Dates: start: 201905
  31. SPIRONOLACTONE [Suspect]
     Active Substance: SPIRONOLACTONE
     Dosage: 100 MILLIGRAM DAILY;
     Route: 065
     Dates: start: 201804
  32. SPIRONOLACTONE [Suspect]
     Active Substance: SPIRONOLACTONE
     Dosage: 50 MILLIGRAM DAILY;
     Route: 065
     Dates: start: 202103
  33. SPIRONOLACTONE [Suspect]
     Active Substance: SPIRONOLACTONE
     Dosage: 100 MILLIGRAM DAILY;
     Route: 065
     Dates: start: 202101
  34. SILDENAFIL [Suspect]
     Active Substance: SILDENAFIL
     Indication: Product used for unknown indication
     Route: 065
     Dates: start: 202101
  35. SILDENAFIL [Suspect]
     Active Substance: SILDENAFIL
     Route: 065
     Dates: start: 202103
  36. SILDENAFIL [Suspect]
     Active Substance: SILDENAFIL
     Route: 065
     Dates: start: 202105
  37. SILDENAFIL [Suspect]
     Active Substance: SILDENAFIL
     Route: 065
     Dates: start: 202104
  38. DAPAGLIFLOZIN [Suspect]
     Active Substance: DAPAGLIFLOZIN
     Indication: Product used for unknown indication
     Dosage: 10 MILLIGRAM DAILY;
     Route: 065
  39. DAPAGLIFLOZIN [Suspect]
     Active Substance: DAPAGLIFLOZIN
     Dosage: 10 MILLIGRAM DAILY;
     Route: 065
     Dates: start: 202109
  40. DAPAGLIFLOZIN [Suspect]
     Active Substance: DAPAGLIFLOZIN
     Dosage: 10 MILLIGRAM DAILY;
     Route: 065
     Dates: start: 202107
  41. DAPAGLIFLOZIN [Suspect]
     Active Substance: DAPAGLIFLOZIN
     Dosage: 10 MILLIGRAM DAILY;
     Route: 065
     Dates: start: 202109
  42. APIXABAN [Suspect]
     Active Substance: APIXABAN
     Indication: Product used for unknown indication
     Dosage: 10 MILLIGRAM DAILY;
     Route: 065
  43. FUROSEMIDE [Suspect]
     Active Substance: FUROSEMIDE
     Indication: Product used for unknown indication
     Dosage: 40 MILLIGRAM DAILY;
     Route: 065
     Dates: start: 202107
  44. FUROSEMIDE [Suspect]
     Active Substance: FUROSEMIDE
     Dosage: 40 MILLIGRAM DAILY;
     Route: 065
     Dates: start: 202109
  45. FUROSEMIDE [Suspect]
     Active Substance: FUROSEMIDE
     Dosage: 40 MILLIGRAM DAILY;
     Route: 065
     Dates: start: 202109
  46. FUROSEMIDE [Suspect]
     Active Substance: FUROSEMIDE
     Dosage: 200 MILLIGRAM DAILY;
     Route: 065
     Dates: start: 201905
  47. FUROSEMIDE [Suspect]
     Active Substance: FUROSEMIDE
     Dosage: 120 MILLIGRAM DAILY;
     Route: 065
     Dates: start: 201804
  48. FUROSEMIDE [Suspect]
     Active Substance: FUROSEMIDE
     Dosage: 160 MILLIGRAM DAILY;
     Route: 065
     Dates: start: 202101
  49. FUROSEMIDE [Suspect]
     Active Substance: FUROSEMIDE
     Dosage: 80 MILLIGRAM DAILY;
     Route: 065
     Dates: start: 202103
  50. FUROSEMIDE [Suspect]
     Active Substance: FUROSEMIDE
     Dosage: 1 TABLET IN THE MORNING
     Route: 065

REACTIONS (7)
  - Congestive cardiomyopathy [Unknown]
  - Cardiac failure [Unknown]
  - Acute kidney injury [Unknown]
  - Glomerular filtration rate abnormal [Unknown]
  - Lung disorder [Unknown]
  - N-terminal prohormone brain natriuretic peptide increased [Unknown]
  - Wrong technique in product usage process [Unknown]

NARRATIVE: CASE EVENT DATE: 20210301
